FAERS Safety Report 15349995 (Version 1)
Quarter: 2018Q3

REPORT INFORMATION
  Report Type: Spontaneous
  Country: IT (occurrence: IT)
  Receive Date: 20180904
  Receipt Date: 20180904
  Transmission Date: 20181010
  Serious: Yes (Hospitalization)
  Sender: FDA-Public Use
  Company Number: IT-ELI_LILLY_AND_COMPANY-IT201808015069

PATIENT
  Age: 64 Year
  Sex: Female

DRUGS (4)
  1. SEROQUEL [Suspect]
     Active Substance: QUETIAPINE FUMARATE
     Indication: BIPOLAR DISORDER
     Dosage: 100 MG, DAILY
     Route: 048
  2. DULOXETINE HYDROCHLORIDE. [Suspect]
     Active Substance: DULOXETINE HYDROCHLORIDE
     Indication: DEPRESSION
     Dosage: 120 MG, DAILY
     Route: 048
  3. DEPAKIN CHRONO                     /00228502/ [Suspect]
     Active Substance: VALPROATE SODIUM
     Indication: BIPOLAR DISORDER
     Dosage: 600 MG, DAILY
     Route: 048
  4. TAVOR (LORAZEPAM) [Suspect]
     Active Substance: LORAZEPAM
     Indication: ANXIETY
     Dosage: 1 DF, DAILY
     Route: 048

REACTIONS (6)
  - Reduced facial expression [Recovering/Resolving]
  - Dyskinesia [Recovering/Resolving]
  - Mydriasis [Recovering/Resolving]
  - Confusional state [Recovering/Resolving]
  - Extrapyramidal disorder [Recovering/Resolving]
  - Acute kidney injury [Recovering/Resolving]

NARRATIVE: CASE EVENT DATE: 20171025
